FAERS Safety Report 22806745 (Version 5)
Quarter: 2024Q1

REPORT INFORMATION
  Report Type: Spontaneous
  Country: DE (occurrence: DE)
  Receive Date: 20230810
  Receipt Date: 20240118
  Transmission Date: 20240410
  Serious: Yes (Death, Life-Threatening, Hospitalization, Disabling, Other)
  Sender: FDA-Public Use
  Company Number: DE-002147023-NVSC2023DE154202

PATIENT
  Age: 66 Year
  Sex: Male
  Weight: 89 kg

DRUGS (90)
  1. CYCLOPHOSPHAMIDE [Suspect]
     Active Substance: CYCLOPHOSPHAMIDE
     Indication: Lymphodepletion
     Dosage: 620 MG
     Route: 042
     Dates: start: 20230615, end: 20230617
  2. FLUDARABINE [Suspect]
     Active Substance: FLUDARABINE PHOSPHATE
     Indication: Lymphodepletion
     Dosage: 62.5 MG
     Route: 042
     Dates: start: 20230615, end: 20230617
  3. ACYCLOVIR [Concomitant]
     Active Substance: ACYCLOVIR
     Indication: Infection prophylaxis
     Dosage: UNK
     Route: 065
     Dates: start: 20230412
  4. AMOXICILLIN\CLAVULANIC ACID [Concomitant]
     Active Substance: AMOXICILLIN\CLAVULANIC ACID
     Indication: Infection prophylaxis
     Dosage: UNK
     Route: 065
     Dates: start: 20230616, end: 20230620
  5. AMOXICILLIN\CLAVULANIC ACID [Concomitant]
     Active Substance: AMOXICILLIN\CLAVULANIC ACID
     Indication: Upper respiratory tract infection
     Dosage: UNK
     Route: 065
     Dates: start: 20230606
  6. AMOXICILLIN\CLAVULANIC ACID [Concomitant]
     Active Substance: AMOXICILLIN\CLAVULANIC ACID
     Dosage: UNK
     Route: 065
     Dates: start: 20230621, end: 20230621
  7. SULFAMETHOXAZOLE\TRIMETHOPRIM [Concomitant]
     Active Substance: SULFAMETHOXAZOLE\TRIMETHOPRIM
     Indication: Infection prophylaxis
     Dosage: UNK
     Route: 065
     Dates: end: 20230621
  8. SULFAMETHOXAZOLE\TRIMETHOPRIM [Concomitant]
     Active Substance: SULFAMETHOXAZOLE\TRIMETHOPRIM
     Dosage: UNK
     Route: 065
     Dates: start: 20230704, end: 20230712
  9. SULFAMETHOXAZOLE\TRIMETHOPRIM [Concomitant]
     Active Substance: SULFAMETHOXAZOLE\TRIMETHOPRIM
     Dosage: UNK
     Route: 065
     Dates: start: 20230704, end: 20230712
  10. SULFAMETHOXAZOLE\TRIMETHOPRIM [Concomitant]
     Active Substance: SULFAMETHOXAZOLE\TRIMETHOPRIM
     Dosage: UNK
     Route: 065
     Dates: start: 20230704, end: 20230712
  11. DIMENHYDRINATE [Concomitant]
     Active Substance: DIMENHYDRINATE
     Indication: Prophylaxis of nausea and vomiting
     Dosage: UNK
     Route: 065
     Dates: start: 20230712, end: 20230712
  12. DIMENHYDRINATE [Concomitant]
     Active Substance: DIMENHYDRINATE
     Indication: Vomiting
     Dosage: UNK
     Route: 065
     Dates: start: 20230616, end: 20230618
  13. ENOXAPARIN SODIUM [Concomitant]
     Active Substance: ENOXAPARIN SODIUM
     Indication: Thrombosis prophylaxis
     Dosage: UNK
     Route: 065
     Dates: start: 20230614, end: 20230622
  14. FLUCONAZOLE [Concomitant]
     Active Substance: FLUCONAZOLE
     Indication: Antifungal prophylaxis
     Dosage: UNK
     Route: 065
     Dates: start: 20230711, end: 20230711
  15. FUROSEMIDE [Concomitant]
     Active Substance: FUROSEMIDE
     Indication: Oedema peripheral
     Dosage: UNK
     Route: 065
     Dates: start: 20230715, end: 20230718
  16. GRANISETRON [Concomitant]
     Active Substance: GRANISETRON
     Indication: Lymphodepletion
     Dosage: UNK
     Route: 065
     Dates: start: 20230615, end: 20230617
  17. Kalinor [Concomitant]
     Indication: Hypokalaemia
     Dosage: UNK
     Route: 065
     Dates: start: 20230716, end: 20230717
  18. POTASSIUM CHLORIDE [Concomitant]
     Active Substance: POTASSIUM CHLORIDE
     Indication: Prophylaxis
     Dosage: UNK
     Route: 065
     Dates: start: 20230702, end: 20230702
  19. LOPERAMIDE [Concomitant]
     Active Substance: LOPERAMIDE
     Indication: Diarrhoea
     Dosage: UNK
     Route: 065
     Dates: start: 20230715, end: 20230715
  20. METAMIZOL [Concomitant]
     Active Substance: METAMIZOLE SODIUM
     Indication: Cytokine release syndrome
     Dosage: UNK
     Route: 065
     Dates: start: 20230625, end: 20230625
  21. METAMIZOL [Concomitant]
     Active Substance: METAMIZOLE SODIUM
     Indication: Plasma cell myeloma
     Dosage: UNK
     Route: 065
     Dates: start: 20230623, end: 20230623
  22. METAMIZOL [Concomitant]
     Active Substance: METAMIZOLE SODIUM
     Dosage: UNK
     Route: 065
     Dates: start: 20230626, end: 20230626
  23. METAMIZOL [Concomitant]
     Active Substance: METAMIZOLE SODIUM
     Dosage: UNK
     Route: 065
     Dates: start: 20230627, end: 20230630
  24. METAMIZOL [Concomitant]
     Active Substance: METAMIZOLE SODIUM
     Dosage: UNK
     Route: 065
     Dates: start: 20230701, end: 20230701
  25. METAMIZOL [Concomitant]
     Active Substance: METAMIZOLE SODIUM
     Dosage: UNK
     Route: 065
     Dates: start: 20230702, end: 20230702
  26. METAMIZOL [Concomitant]
     Active Substance: METAMIZOLE SODIUM
     Dosage: UNK
     Route: 065
     Dates: start: 20230703, end: 20230703
  27. METAMIZOL [Concomitant]
     Active Substance: METAMIZOLE SODIUM
     Dosage: UNK
     Route: 065
     Dates: start: 20230704, end: 20230712
  28. METAMIZOL [Concomitant]
     Active Substance: METAMIZOLE SODIUM
     Dosage: UNK
     Route: 065
     Dates: start: 20230712, end: 20230712
  29. METAMIZOL [Concomitant]
     Active Substance: METAMIZOLE SODIUM
     Dosage: UNK
     Route: 065
     Dates: start: 20230720, end: 20230720
  30. METOCLOPRAMIDE [Concomitant]
     Active Substance: METOCLOPRAMIDE
     Indication: Vomiting
     Dosage: UNK
     Route: 065
     Dates: start: 20230619, end: 20230621
  31. SODIUM CHLORIDE [Concomitant]
     Active Substance: SODIUM CHLORIDE
     Indication: Prophylaxis
     Dosage: UNK
     Route: 065
     Dates: start: 20230614, end: 20230704
  32. SODIUM PICOSULFATE [Concomitant]
     Active Substance: SODIUM PICOSULFATE
     Indication: Constipation
     Dosage: UNK
     Route: 065
     Dates: start: 20230629, end: 20230629
  33. METAMIZOLE [Concomitant]
     Active Substance: METAMIZOLE
     Dosage: UNK (500 MG/ML)
     Route: 065
     Dates: start: 20230623, end: 20230624
  34. METAMIZOLE [Concomitant]
     Active Substance: METAMIZOLE
     Dosage: UNK (500 MG/ML)
     Route: 065
     Dates: start: 20230625, end: 20230625
  35. METAMIZOLE [Concomitant]
     Active Substance: METAMIZOLE
     Dosage: UNK (500 MG/ML)
     Route: 065
     Dates: start: 20230626, end: 20230626
  36. METAMIZOLE [Concomitant]
     Active Substance: METAMIZOLE
     Dosage: UNK (500 MG/ML)
     Route: 065
     Dates: start: 20230627, end: 20230630
  37. METAMIZOLE [Concomitant]
     Active Substance: METAMIZOLE
     Dosage: UNK (500 MG/ML)
     Route: 065
     Dates: start: 20230701, end: 20230701
  38. METAMIZOLE [Concomitant]
     Active Substance: METAMIZOLE
     Dosage: UNK (500 MG/ML)
     Route: 065
     Dates: start: 20230702, end: 20230702
  39. METAMIZOLE [Concomitant]
     Active Substance: METAMIZOLE
     Dosage: UNK (500 MG/ML)
     Route: 065
     Dates: start: 20230703, end: 20230703
  40. METAMIZOLE [Concomitant]
     Active Substance: METAMIZOLE
     Indication: Plasma cell myeloma
     Dosage: UNK
     Route: 065
     Dates: start: 20230621, end: 20230621
  41. ONDANSETRON [Concomitant]
     Active Substance: ONDANSETRON
     Indication: Prophylaxis of nausea and vomiting
     Dosage: UNK
     Route: 065
     Dates: start: 20230617, end: 20230617
  42. ONDANSETRON [Concomitant]
     Active Substance: ONDANSETRON
     Indication: Prophylaxis of nausea and vomiting
     Dosage: UNK
     Route: 065
     Dates: start: 20230618, end: 20230618
  43. ONDANSETRON [Concomitant]
     Active Substance: ONDANSETRON
     Indication: Vomiting
     Dosage: UNK
     Route: 065
     Dates: start: 20230616, end: 20230617
  44. ONDANSETRON [Concomitant]
     Active Substance: ONDANSETRON
     Dosage: UNK
     Route: 065
     Dates: start: 20230619, end: 20230622
  45. ONDANSETRON [Concomitant]
     Active Substance: ONDANSETRON
     Dosage: UNK
     Route: 065
     Dates: start: 20230623, end: 20230626
  46. ONDANSETRON [Concomitant]
     Active Substance: ONDANSETRON
     Dosage: UNK
     Route: 065
     Dates: start: 20230627, end: 20230627
  47. ONDANSETRON [Concomitant]
     Active Substance: ONDANSETRON
     Dosage: UNK
     Route: 065
     Dates: start: 20230719, end: 20230719
  48. PANTOPRAZOLE SODIUM [Concomitant]
     Active Substance: PANTOPRAZOLE SODIUM
     Indication: Prophylaxis
     Dosage: UNK
     Route: 065
     Dates: start: 20230618, end: 20230623
  49. PANTOPRAZOLE SODIUM [Concomitant]
     Active Substance: PANTOPRAZOLE SODIUM
     Dosage: UNK
     Route: 065
     Dates: start: 20230624
  50. ACETAMINOPHEN [Concomitant]
     Active Substance: ACETAMINOPHEN
     Indication: Cytokine release syndrome
     Dosage: UNK
     Route: 065
     Dates: start: 20230627, end: 20230628
  51. ACETAMINOPHEN [Concomitant]
     Active Substance: ACETAMINOPHEN
     Indication: Plasma cell myeloma
     Dosage: UNK
     Route: 065
     Dates: start: 20230701, end: 20230701
  52. ACETAMINOPHEN [Concomitant]
     Active Substance: ACETAMINOPHEN
     Indication: Plasma cell myeloma
     Dosage: UNK
     Route: 065
     Dates: start: 20230716, end: 20230719
  53. ACETAMINOPHEN [Concomitant]
     Active Substance: ACETAMINOPHEN
     Dosage: UNK
     Route: 065
     Dates: start: 20230712, end: 20230713
  54. ACETAMINOPHEN [Concomitant]
     Active Substance: ACETAMINOPHEN
     Dosage: UNK
     Route: 065
     Dates: start: 20230720, end: 20230720
  55. ACETAMINOPHEN [Concomitant]
     Active Substance: ACETAMINOPHEN
     Dosage: UNK
     Route: 065
  56. PIPERACILLIN SODIUM\TAZOBACTAM SODIUM [Concomitant]
     Active Substance: PIPERACILLIN SODIUM\TAZOBACTAM SODIUM
     Indication: Pyrexia
     Dosage: UNK
     Route: 065
     Dates: start: 20230621, end: 20230627
  57. PIPERACILLIN SODIUM\TAZOBACTAM SODIUM [Concomitant]
     Active Substance: PIPERACILLIN SODIUM\TAZOBACTAM SODIUM
     Dosage: UNK
     Route: 065
     Dates: start: 20230627, end: 20230627
  58. PIPERACILLIN SODIUM\TAZOBACTAM SODIUM [Concomitant]
     Active Substance: PIPERACILLIN SODIUM\TAZOBACTAM SODIUM
     Dosage: UNK
     Route: 065
     Dates: start: 20230712, end: 20230712
  59. PIPERACILLIN SODIUM\TAZOBACTAM SODIUM [Concomitant]
     Active Substance: PIPERACILLIN SODIUM\TAZOBACTAM SODIUM
     Dosage: UNK
     Route: 065
     Dates: start: 20230719
  60. POSACONAZOLE [Concomitant]
     Active Substance: POSACONAZOLE
     Indication: Prophylaxis
     Dosage: UNK
     Route: 065
     Dates: start: 20230621, end: 20230621
  61. POTASSIUM CITRATE [Concomitant]
     Active Substance: POTASSIUM CITRATE
     Indication: Prophylaxis
     Dosage: UNK
     Route: 065
     Dates: start: 20230702, end: 20230702
  62. CALCIUM CHLORIDE\MAGNESIUM CHLORIDE\POTASSIUM CHLORIDE\SODIUM ACETATE\ [Concomitant]
     Active Substance: CALCIUM CHLORIDE\MAGNESIUM CHLORIDE\POTASSIUM CHLORIDE\SODIUM ACETATE\SODIUM CHLORIDE
     Indication: Cytokine release syndrome
     Dosage: UNK
     Route: 065
     Dates: start: 20230629, end: 20230629
  63. CALCIUM CHLORIDE\MAGNESIUM CHLORIDE\POTASSIUM CHLORIDE\SODIUM ACETATE\ [Concomitant]
     Active Substance: CALCIUM CHLORIDE\MAGNESIUM CHLORIDE\POTASSIUM CHLORIDE\SODIUM ACETATE\SODIUM CHLORIDE
     Dosage: UNK
     Route: 065
     Dates: start: 20230627, end: 20230627
  64. CALCIUM CHLORIDE\MAGNESIUM CHLORIDE\POTASSIUM CHLORIDE\SODIUM ACETATE\ [Concomitant]
     Active Substance: CALCIUM CHLORIDE\MAGNESIUM CHLORIDE\POTASSIUM CHLORIDE\SODIUM ACETATE\SODIUM CHLORIDE
     Dosage: UNK
     Route: 065
     Dates: start: 20230628, end: 20230628
  65. CALCIUM CHLORIDE\MAGNESIUM CHLORIDE\POTASSIUM CHLORIDE\SODIUM ACETATE\ [Concomitant]
     Active Substance: CALCIUM CHLORIDE\MAGNESIUM CHLORIDE\POTASSIUM CHLORIDE\SODIUM ACETATE\SODIUM CHLORIDE
     Dosage: UNK
     Route: 065
     Dates: start: 20230630, end: 20230701
  66. CALCIUM CHLORIDE\MAGNESIUM CHLORIDE\MALIC ACID\POTASSIUM CHLORIDE\SODI [Concomitant]
     Active Substance: CALCIUM CHLORIDE\MAGNESIUM CHLORIDE\MALIC ACID\POTASSIUM CHLORIDE\SODIUM ACETATE\SODIUM CHLORIDE
     Indication: Lymphodepletion
     Dosage: UNK
     Route: 065
     Dates: start: 20230615, end: 20230617
  67. CALCIUM CHLORIDE\MAGNESIUM CHLORIDE\MALIC ACID\POTASSIUM CHLORIDE\SODI [Concomitant]
     Active Substance: CALCIUM CHLORIDE\MAGNESIUM CHLORIDE\MALIC ACID\POTASSIUM CHLORIDE\SODIUM ACETATE\SODIUM CHLORIDE
     Indication: Vomiting
     Dosage: UNK
     Route: 065
     Dates: start: 20230619, end: 20230619
  68. CALCIUM CHLORIDE\MAGNESIUM CHLORIDE\MALIC ACID\POTASSIUM CHLORIDE\SODI [Concomitant]
     Active Substance: CALCIUM CHLORIDE\MAGNESIUM CHLORIDE\MALIC ACID\POTASSIUM CHLORIDE\SODIUM ACETATE\SODIUM CHLORIDE
     Dosage: UNK
     Route: 065
     Dates: start: 20230712, end: 20230712
  69. CALCIUM CHLORIDE\MAGNESIUM CHLORIDE\MALIC ACID\POTASSIUM CHLORIDE\SODI [Concomitant]
     Active Substance: CALCIUM CHLORIDE\MAGNESIUM CHLORIDE\MALIC ACID\POTASSIUM CHLORIDE\SODIUM ACETATE\SODIUM CHLORIDE
     Dosage: UNK
     Route: 065
     Dates: start: 20230713, end: 20230713
  70. CALCIUM CHLORIDE\MAGNESIUM CHLORIDE\MALIC ACID\POTASSIUM CHLORIDE\SODI [Concomitant]
     Active Substance: CALCIUM CHLORIDE\MAGNESIUM CHLORIDE\MALIC ACID\POTASSIUM CHLORIDE\SODIUM ACETATE\SODIUM CHLORIDE
     Dosage: UNK
     Route: 065
     Dates: start: 20230714, end: 20230714
  71. NALOXONE HYDROCHLORIDE\TILIDINE HYDROCHLORIDE [Concomitant]
     Active Substance: NALOXONE HYDROCHLORIDE\TILIDINE HYDROCHLORIDE
     Indication: Plasma cell myeloma
     Dosage: UNK
     Route: 065
     Dates: start: 20230619, end: 20230620
  72. NALOXONE HYDROCHLORIDE\TILIDINE HYDROCHLORIDE [Concomitant]
     Active Substance: NALOXONE HYDROCHLORIDE\TILIDINE HYDROCHLORIDE
     Dosage: UNK
     Route: 065
     Dates: start: 20230621, end: 20230621
  73. NALOXONE HYDROCHLORIDE\TILIDINE HYDROCHLORIDE [Concomitant]
     Active Substance: NALOXONE HYDROCHLORIDE\TILIDINE HYDROCHLORIDE
     Dosage: UNK
     Route: 065
     Dates: start: 20230621, end: 20230711
  74. TORSEMIDE [Concomitant]
     Active Substance: TORSEMIDE
     Indication: Oedema peripheral
     Dosage: UNK
     Route: 065
     Dates: start: 20230702, end: 20230702
  75. TRAMADOL [Concomitant]
     Active Substance: TRAMADOL\TRAMADOL HYDROCHLORIDE
     Indication: Plasma cell myeloma
     Dosage: UNK
     Route: 065
     Dates: end: 20230618
  76. TRAMADOL [Concomitant]
     Active Substance: TRAMADOL\TRAMADOL HYDROCHLORIDE
     Dosage: UNK
     Route: 065
     Dates: start: 20230711, end: 20230720
  77. TRAMADOL [Concomitant]
     Active Substance: TRAMADOL\TRAMADOL HYDROCHLORIDE
     Dosage: UNK
     Route: 065
     Dates: start: 20230711, end: 20230720
  78. Vigantol [Concomitant]
     Indication: Metastatic bone disease prophylaxis
     Dosage: UNK
     Route: 065
     Dates: start: 20230520
  79. DIMENHYDRINATE [Concomitant]
     Active Substance: DIMENHYDRINATE
     Indication: Prophylaxis of nausea and vomiting
     Dosage: UNK
     Route: 065
     Dates: start: 20230712, end: 20230712
  80. DIMENHYDRINATE [Concomitant]
     Active Substance: DIMENHYDRINATE
     Indication: Vomiting
     Dosage: UNK
     Route: 065
     Dates: start: 20230616, end: 20230618
  81. DIMENHYDRINATE [Concomitant]
     Active Substance: DIMENHYDRINATE
     Dosage: UNK
     Route: 065
     Dates: start: 20230619, end: 20230619
  82. XIPAMIDE [Concomitant]
     Active Substance: XIPAMIDE
     Indication: Oedema peripheral
     Dosage: UNK
     Route: 065
     Dates: start: 20230717, end: 20230717
  83. XYLOMETAZOLINE HYDROCHLORIDE [Concomitant]
     Active Substance: XYLOMETAZOLINE HYDROCHLORIDE
     Indication: Nasal congestion
     Dosage: UNK
     Route: 065
     Dates: start: 20230614
  84. ZOFRAN [Concomitant]
     Active Substance: ONDANSETRON HYDROCHLORIDE
     Indication: Prophylaxis of nausea and vomiting
     Dosage: UNK
     Route: 065
     Dates: start: 20230617, end: 20230617
  85. ZOFRAN [Concomitant]
     Active Substance: ONDANSETRON HYDROCHLORIDE
     Indication: Vomiting
     Dosage: UNK
     Route: 065
     Dates: start: 20230619, end: 20230622
  86. ZOFRAN [Concomitant]
     Active Substance: ONDANSETRON HYDROCHLORIDE
     Dosage: UNK
     Route: 065
     Dates: start: 20230616, end: 20230617
  87. ZOFRAN [Concomitant]
     Active Substance: ONDANSETRON HYDROCHLORIDE
     Dosage: UNK
     Route: 065
     Dates: start: 20230618, end: 20230618
  88. ZOFRAN [Concomitant]
     Active Substance: ONDANSETRON HYDROCHLORIDE
     Dosage: UNK
     Route: 065
     Dates: start: 20230623, end: 20230626
  89. ZOFRAN [Concomitant]
     Active Substance: ONDANSETRON HYDROCHLORIDE
     Dosage: UNK
     Route: 065
     Dates: start: 20230627, end: 20230627
  90. ZOMETA [Concomitant]
     Active Substance: ZOLEDRONIC ACID
     Indication: Plasma cell myeloma
     Dosage: UNK
     Route: 065

REACTIONS (6)
  - Stenotrophomonas sepsis [Fatal]
  - Sepsis [Recovered/Resolved]
  - Prothrombin time shortened [Recovered/Resolved]
  - Thrombocytopenia [Not Recovered/Not Resolved]
  - Neutropenia [Not Recovered/Not Resolved]
  - Dyspnoea [Recovered/Resolved]

NARRATIVE: CASE EVENT DATE: 20230628
